FAERS Safety Report 16190189 (Version 3)
Quarter: 2019Q2

REPORT INFORMATION
  Report Type: Spontaneous
  Country: GR (occurrence: GR)
  Receive Date: 20190412
  Receipt Date: 20190515
  Transmission Date: 20190711
  Serious: Yes (Other)
  Sender: FDA-Public Use
  Company Number: PHHY2019GR084412

PATIENT
  Age: 80 Year
  Sex: Female

DRUGS (1)
  1. FEMARA [Suspect]
     Active Substance: LETROZOLE
     Indication: BREAST CANCER
     Dosage: UNK
     Route: 065
     Dates: start: 201504, end: 2016

REACTIONS (6)
  - Osteonecrosis [Unknown]
  - Osteoarthritis [Unknown]
  - Bone swelling [Unknown]
  - Arthralgia [Unknown]
  - Bone infarction [Unknown]
  - Post procedural oedema [Unknown]

NARRATIVE: CASE EVENT DATE: 2016
